FAERS Safety Report 5211002-X (Version None)
Quarter: 2006Q4

REPORT INFORMATION
  Report Type: 
  Country: None (occurrence: None)
  Receive Date: 20061114
  Receipt Date: 20060803
  Transmission Date: 20070319
  Serious: No
  Sender: FDA-Public Use
  Company Number: S06-USA-03176-01

PATIENT
  Age: 78 Year
  Sex: Male

DRUGS (6)
  1. NAMENDA [Suspect]
     Indication: DEMENTIA ALZHEIMER'S TYPE
     Dosage: 5 MG QD PO
     Route: 048
     Dates: start: 20060714, end: 20060720
  2. NAMENDA [Suspect]
     Indication: DEMENTIA ALZHEIMER'S TYPE
     Dosage: 5 MG BID PO
     Route: 048
     Dates: start: 20060721, end: 20060727
  3. ARICEPT [Concomitant]
  4. OMACOR (OMEGA-3 MARINE TRIGLYCERIDES) [Concomitant]
  5. NAMENDA [Suspect]
     Indication: DEMENTIA ALZHEIMER'S TYPE
     Dosage: 15 MG QD PO
     Route: 048
     Dates: start: 20060728
  6. SUPPLEMENTS (NOS) [Concomitant]

REACTIONS (2)
  - DECREASED APPETITE [None]
  - LETHARGY [None]
